FAERS Safety Report 16614264 (Version 1)
Quarter: 2019Q3

REPORT INFORMATION
  Report Type: Spontaneous
  Country: FR (occurrence: FR)
  Receive Date: 20190723
  Receipt Date: 20190723
  Transmission Date: 20191004
  Serious: Yes (Other)
  Sender: FDA-Public Use
  Company Number: FR-PFIZER INC-2019306089

PATIENT
  Age: 62 Year
  Sex: Male

DRUGS (2)
  1. ALPRAZOLAM. [Suspect]
     Active Substance: ALPRAZOLAM
     Indication: SUICIDE ATTEMPT
     Dosage: 1 UNK, SINGLE
     Route: 048
     Dates: start: 20180829, end: 20180829
  2. PARACETAMOL [Suspect]
     Active Substance: ACETAMINOPHEN
     Indication: SUICIDE ATTEMPT
     Dosage: 11 G, SINGLE
     Route: 048
     Dates: start: 20180829, end: 20180829

REACTIONS (4)
  - Somnolence [Recovered/Resolved]
  - Miosis [Recovered/Resolved]
  - Intentional product misuse [Recovered/Resolved]
  - Toxicity to various agents [Recovered/Resolved]

NARRATIVE: CASE EVENT DATE: 20180829
